FAERS Safety Report 5110880-2 (Version None)
Quarter: 2006Q3

REPORT INFORMATION
  Report Type: 
  Country: None (occurrence: None)
  Receive Date: 20060919
  Receipt Date: 20060827
  Transmission Date: 20061208
  Serious: Yes (Death)
  Sender: FDA-Public Use
  Company Number: MEDI-0004880

PATIENT
  Age: 15 Month
  Sex: Female

DRUGS (22)
  1. SYNAGIS [Suspect]
     Indication: HEART DISEASE CONGENITAL
     Dosage: SEE IMAGE
     Dates: start: 20041002, end: 20050128
  2. SYNAGIS [Suspect]
     Indication: RESPIRATORY SYNCYTIAL VIRUS INFECTION
     Dosage: SEE IMAGE
     Dates: start: 20041002, end: 20050128
  3. SYNAGIS [Suspect]
     Indication: HEART DISEASE CONGENITAL
     Dosage: SEE IMAGE
     Dates: start: 20050331, end: 20050331
  4. SYNAGIS [Suspect]
     Indication: RESPIRATORY SYNCYTIAL VIRUS INFECTION
     Dosage: SEE IMAGE
     Dates: start: 20050331, end: 20050331
  5. SYNAGIS [Suspect]
     Indication: HEART DISEASE CONGENITAL
     Dosage: SEE IMAGE
     Dates: start: 20041002
  6. SYNAGIS [Suspect]
     Indication: RESPIRATORY SYNCYTIAL VIRUS INFECTION
     Dosage: SEE IMAGE
     Dates: start: 20041002
  7. SYNAGIS [Suspect]
     Indication: HEART DISEASE CONGENITAL
     Dosage: SEE IMAGE
     Dates: start: 20041028
  8. SYNAGIS [Suspect]
     Indication: RESPIRATORY SYNCYTIAL VIRUS INFECTION
     Dosage: SEE IMAGE
     Dates: start: 20041028
  9. SYNAGIS [Suspect]
     Indication: HEART DISEASE CONGENITAL
     Dosage: SEE IMAGE
     Dates: start: 20041129
  10. SYNAGIS [Suspect]
     Indication: RESPIRATORY SYNCYTIAL VIRUS INFECTION
     Dosage: SEE IMAGE
     Dates: start: 20041129
  11. SYNAGIS [Suspect]
     Indication: HEART DISEASE CONGENITAL
     Dosage: SEE IMAGE
     Dates: start: 20041230
  12. SYNAGIS [Suspect]
     Indication: RESPIRATORY SYNCYTIAL VIRUS INFECTION
     Dosage: SEE IMAGE
     Dates: start: 20041230
  13. SYNAGIS [Suspect]
  14. SYNAGIS [Suspect]
  15. SYNAGIS [Suspect]
  16. SYNAGIS [Suspect]
  17. SYNAGIS [Suspect]
  18. SYNAGIS [Suspect]
  19. SYNAGIS [Suspect]
  20. SYNAGIS [Suspect]
  21. CEFTRIAXONE [Concomitant]
  22. VANCOMYCIN [Concomitant]

REACTIONS (6)
  - DRUG DOSE OMISSION [None]
  - ENTEROCOCCAL BACTERAEMIA [None]
  - PNEUMONIA RESPIRATORY SYNCYTIAL VIRAL [None]
  - PNEUMONITIS [None]
  - RESPIRATORY SYNCYTIAL VIRUS INFECTION [None]
  - STAPHYLOCOCCAL BACTERAEMIA [None]
